FAERS Safety Report 21710453 (Version 2)
Quarter: 2022Q4

REPORT INFORMATION
  Report Type: Report from Study
  Country: US (occurrence: US)
  Receive Date: 20221211
  Receipt Date: 20221221
  Transmission Date: 20230113
  Serious: Yes (Death)
  Sender: FDA-Public Use
  Company Number: US-ABBVIE-4232141

PATIENT
  Age: 57 Year
  Sex: Female

DRUGS (1)
  1. HUMIRA [Suspect]
     Active Substance: ADALIMUMAB
     Indication: Crohn^s disease
     Route: 058

REACTIONS (4)
  - SARS-CoV-2 test positive [Fatal]
  - Pyrexia [Fatal]
  - Chest pain [Fatal]
  - Oropharyngeal pain [Fatal]

NARRATIVE: CASE EVENT DATE: 20220811
